FAERS Safety Report 7581073-4 (Version None)
Quarter: 2011Q2

REPORT INFORMATION
  Report Type: 
  Country: None (occurrence: None)
  Receive Date: 20110629
  Receipt Date: 20110623
  Transmission Date: 20111010
  Serious: Yes (Death)
  Sender: FDA-Public Use
  Company Number: PHHY2011AU56199

PATIENT
  Age: 28 Year

DRUGS (8)
  1. CODEINE SULFATE [Suspect]
     Dosage: UNK
  2. TEMAZEPAM [Suspect]
     Dosage: UNK
  3. VENLAFAXINE [Suspect]
     Dosage: UNK
  4. ACETAMINOPHEN [Suspect]
     Dosage: UNK
  5. CLONAZEPAM [Suspect]
     Dosage: UNK
  6. NORDIAZEPAM [Suspect]
     Dosage: UNK
  7. METHADONE HCL [Suspect]
     Dosage: 12.5 MG, UNK
  8. DIAZEPAM [Suspect]
     Dosage: UNK

REACTIONS (5)
  - ACCIDENTAL POISONING [None]
  - SNORING [None]
  - TOXICITY TO VARIOUS AGENTS [None]
  - RESPIRATORY DEPRESSION [None]
  - SOMNOLENCE [None]
